FAERS Safety Report 5105225-8 (Version None)
Quarter: 2006Q3

REPORT INFORMATION
  Report Type: 
  Country: None (occurrence: None)
  Receive Date: 20060911
  Receipt Date: 20060830
  Transmission Date: 20061208
  Serious: Yes (Other)
  Sender: FDA-Public Use
  Company Number: 14728

PATIENT
  Age: 18 Month
  Sex: Female

DRUGS (4)
  1. CARBOPLATIN [Suspect]
     Indication: RETINOBLASTOMA
     Dosage: 20 MG PER_CYCLE EY
  2. CARBOPLATIN [Concomitant]
  3. VINCRISTINE [Concomitant]
  4. ETOPOSIDE [Concomitant]

REACTIONS (10)
  - BLINDNESS UNILATERAL [None]
  - DYSTROPHIC CALCIFICATION [None]
  - EYE PAIN [None]
  - FIBROSIS [None]
  - GLIOSIS [None]
  - INFLAMMATION [None]
  - INFUSION SITE REACTION [None]
  - NECROSIS ISCHAEMIC [None]
  - OPTIC ATROPHY [None]
  - OPTIC NEUROPATHY [None]
